FAERS Safety Report 26021058 (Version 2)
Quarter: 2025Q4

REPORT INFORMATION
  Report Type: Spontaneous
  Country: JP (occurrence: JP)
  Receive Date: 20251110
  Receipt Date: 20251226
  Transmission Date: 20260117
  Serious: Yes (Death)
  Sender: BAYER HEALTHCARE PHARMACEUTICALS INC.
  Company Number: JP-BAYER-2025A147327

PATIENT
  Age: 61 Year
  Sex: Male

DRUGS (2)
  1. NUBEQA [Suspect]
     Active Substance: DAROLUTAMIDE
     Indication: Prostate cancer metastatic
     Dosage: DAILY DOSE 1200 MG
     Route: 048
     Dates: start: 20240220, end: 20240704
  2. DOCETAXEL [Concomitant]
     Active Substance: DOCETAXEL
     Indication: Prostate cancer

REACTIONS (4)
  - Neuroendocrine cancer of the prostate metastatic [Fatal]
  - Metastases to lymph nodes [Fatal]
  - Lymphatic system neoplasm [Fatal]
  - Neuroendocrine tumour of the lung [Fatal]

NARRATIVE: CASE EVENT DATE: 20240430
